FAERS Safety Report 12068343 (Version 1)
Quarter: 2016Q1

REPORT INFORMATION
  Report Type: Spontaneous
  Country: US (occurrence: US)
  Receive Date: 20160211
  Receipt Date: 20160211
  Transmission Date: 20160526
  Serious: No
  Sender: FDA-Public Use
  Company Number: US-SMITH AND NEPHEW, INC-2015SMT00545

PATIENT
  Age: 91 Year
  Sex: Male
  Weight: 75.28 kg

DRUGS (5)
  1. UNSPECIFIED TYPE II DIABETES MEDICATION(S) [Concomitant]
  2. UNSPECIFIED HEART MEDICATION(S) [Concomitant]
  3. REGRANEX [Suspect]
     Active Substance: BECAPLERMIN
     Indication: WOUND
     Dosage: UNK UNK, 1X/DAY
     Route: 061
     Dates: start: 20151111
  4. VITAMIN B12 [Concomitant]
     Active Substance: CYANOCOBALAMIN
  5. UNSPECIFIED STROKE PREVENTION MEDICATION(S) [Concomitant]

REACTIONS (1)
  - Application site discolouration [Unknown]

NARRATIVE: CASE EVENT DATE: 20151116
